FAERS Safety Report 25818763 (Version 5)
Quarter: 2025Q4

REPORT INFORMATION
  Report Type: Report from Study
  Country: US (occurrence: US)
  Receive Date: 20250918
  Receipt Date: 20251217
  Transmission Date: 20260119
  Serious: Yes (Hospitalization, Other)
  Sender: SPRINGWORKS THERAPEUTIC
  Company Number: US-SPRINGWORKS THERAPEUTICS-SW-003343

PATIENT
  Age: 69 Year
  Sex: Male
  Weight: 62.585 kg

DRUGS (3)
  1. NIROGACESTAT [Suspect]
     Active Substance: NIROGACESTAT
     Indication: Desmoid tumour
     Dosage: 150 MILLIGRAM, BID
     Route: 061
     Dates: start: 202508, end: 20250905
  2. NIROGACESTAT [Suspect]
     Active Substance: NIROGACESTAT
     Dosage: 100 MILLIGRAM, QD
     Route: 061
     Dates: start: 20251015, end: 20251028
  3. NIROGACESTAT [Suspect]
     Active Substance: NIROGACESTAT
     Dosage: 100 MILLIGRAM, QD
     Route: 061
     Dates: start: 20251125

REACTIONS (12)
  - Dehydration [Unknown]
  - Intestinal obstruction [Recovering/Resolving]
  - Biliary obstruction [Recovering/Resolving]
  - Diarrhoea [Unknown]
  - Renal failure [Recovering/Resolving]
  - Blood creatinine increased [Unknown]
  - Pain [Recovered/Resolved]
  - Vomiting [Recovered/Resolved]
  - Neoplasm progression [Unknown]
  - Diarrhoea [Recovering/Resolving]
  - Product dose omission issue [Unknown]
  - Underdose [Unknown]

NARRATIVE: CASE EVENT DATE: 20251017
